FAERS Safety Report 9002270 (Version 1)
Quarter: 2013Q1

REPORT INFORMATION
  Report Type: Spontaneous
  Country: US (occurrence: US)
  Receive Date: 20130107
  Receipt Date: 20130107
  Transmission Date: 20140127
  Serious: Yes (Other)
  Sender: FDA-Public Use
  Company Number: US-PFIZER INC-2013002876

PATIENT
  Age: 93 Year
  Sex: Female

DRUGS (2)
  1. EFFEXOR XR [Suspect]
     Dosage: 37.5 MG, UNK
  2. EFFEXOR XR [Suspect]
     Dosage: 37.5 MG, ALTERNATE DAY

REACTIONS (4)
  - Withdrawal syndrome [Unknown]
  - Nausea [Unknown]
  - Fatigue [Unknown]
  - Bedridden [Unknown]
